FAERS Safety Report 16765215 (Version 2)
Quarter: 2019Q4

REPORT INFORMATION
  Report Type: Report from Study
  Country: US (occurrence: US)
  Receive Date: 20190903
  Receipt Date: 20191009
  Transmission Date: 20200122
  Serious: Yes (Other)
  Sender: FDA-Public Use
  Company Number: US-ROCHE-2356285

PATIENT
  Age: 31 Year
  Sex: Female
  Weight: 178.42 kg

DRUGS (2)
  1. OCREVUS [Suspect]
     Active Substance: OCRELIZUMAB
     Route: 042
     Dates: start: 20190923
  2. OCREVUS [Suspect]
     Active Substance: OCRELIZUMAB
     Indication: RELAPSING MULTIPLE SCLEROSIS
     Dosage: ON DAY 1 AND 15; INITIAL DOSE FOLLOWED BY 600 MG EVERY 6 MONTHS, SUBSEQUENT DOSE
     Route: 042
     Dates: start: 20190107

REACTIONS (6)
  - Bronchitis [Recovered/Resolved]
  - Optic neuritis [Recovered/Resolved with Sequelae]
  - Urinary tract infection [Unknown]
  - Infusion related reaction [Not Recovered/Not Resolved]
  - Relapsing multiple sclerosis [Unknown]
  - Upper respiratory tract infection [Recovered/Resolved]

NARRATIVE: CASE EVENT DATE: 201903
